FAERS Safety Report 12460824 (Version 1)
Quarter: 2016Q2

REPORT INFORMATION
  Report Type: Spontaneous
  Country: IN (occurrence: IN)
  Receive Date: 20160613
  Receipt Date: 20160613
  Transmission Date: 20160815
  Serious: Yes (Other)
  Sender: FDA-Public Use
  Company Number: IN-PFIZER INC-15280

PATIENT
  Age: 17 Day
  Sex: Male
  Weight: 3 kg

DRUGS (5)
  1. ATROPINE SULFATE. [Concomitant]
     Active Substance: ATROPINE SULFATE
     Dosage: 0.2 MG, PRIOR TO VENTRICULOPERITONEAL SHUNT PROCEDURE, FREQ: UNK
     Route: 048
  2. FENTANYL CITRATE. [Concomitant]
     Active Substance: FENTANYL CITRATE
     Dosage: FREQ: UNK
     Route: 065
  3. DEXAMETHASONE SODIUM PHOSPHATE. [Concomitant]
     Active Substance: DEXAMETHASONE SODIUM PHOSPHATE
     Dosage: 2 MG, DURING THE EARLY PART OF SURGERY, FREQ: ONCE
     Route: 042
  4. ISOFLURANE. [Concomitant]
     Active Substance: ISOFLURANE
     Dosage: 0.4% -0.6% INSPIRED CONCENTRATION, FREQ: UNK
     Route: 065
  5. PHENYTOIN SODIUM. [Suspect]
     Active Substance: PHENYTOIN SODIUM
     Indication: SEIZURE
     Dosage: 15 MG, DILUTED WITH 10 ML NORMAL SALINE ADMINISTERED OVER A 7 MINUTE PERIOD
     Route: 042

REACTIONS (1)
  - Bradycardia neonatal [Recovered/Resolved]
